FAERS Safety Report 4983533-9 (Version None)
Quarter: 2006Q2

REPORT INFORMATION
  Report Type: 
  Country: None (occurrence: None)
  Receive Date: 20060419
  Receipt Date: 20060410
  Transmission Date: 20061013
  Serious: Yes (Other)
  Sender: FDA-Public Use
  Company Number: 2006049816

PATIENT

DRUGS (3)
  1. DALTEPARIN SODIUM [Suspect]
     Indication: ILL-DEFINED DISORDER
  2. DALTEPARIN SODIUM [Suspect]
  3. DALTEPARIN SODIUM [Suspect]

REACTIONS (3)
  - CATHETER RELATED COMPLICATION [None]
  - DIALYSIS [None]
  - THROMBOSIS IN DEVICE [None]
